FAERS Safety Report 7476386-0 (Version None)
Quarter: 2011Q2

REPORT INFORMATION
  Report Type: 
  Country: None (occurrence: None)
  Receive Date: 20110512
  Receipt Date: 20110502
  Transmission Date: 20111010
  Serious: Yes (Hospitalization)
  Sender: FDA-Public Use
  Company Number: B0716782A

PATIENT
  Sex: Female

DRUGS (13)
  1. ASPIRIN [Suspect]
     Dosage: 75MG PER DAY
     Route: 048
  2. ALLOPURINOL [Concomitant]
     Route: 048
  3. ACETAMINOPHEN [Concomitant]
     Route: 048
  4. FORLAX [Concomitant]
     Dosage: 10G PER DAY
     Route: 048
  5. CARDENSIEL [Concomitant]
     Dosage: 2.5MG PER DAY
     Route: 048
  6. PLAVIX [Suspect]
     Dosage: 75MG PER DAY
     Route: 048
     Dates: end: 20110317
  7. CRESTOR [Concomitant]
     Route: 048
  8. NOOTROPYL [Concomitant]
     Route: 048
  9. ARIXTRA [Suspect]
     Indication: DEEP VEIN THROMBOSIS
     Dosage: 5MG PER DAY
     Route: 058
     Dates: start: 20110302, end: 20110317
  10. LASIX [Concomitant]
     Route: 048
  11. RAMIPRIL [Concomitant]
     Dosage: 2.5MG THREE TIMES PER DAY
     Route: 048
  12. PRAXILENE [Concomitant]
     Route: 048
  13. OMEPRAZOLE [Concomitant]
     Dosage: 20MG PER DAY
     Route: 048

REACTIONS (7)
  - OEDEMA PERIPHERAL [None]
  - INDURATION [None]
  - TRAUMATIC HAEMATOMA [None]
  - ANAEMIA [None]
  - DRUG INTERACTION [None]
  - PALLOR [None]
  - INFLAMMATION [None]
